FAERS Safety Report 6491170-2 (Version None)
Quarter: 2009Q4

REPORT INFORMATION
  Report Type: 
  Country: None (occurrence: None)
  Receive Date: 20091211
  Receipt Date: 20091202
  Transmission Date: 20100525
  Serious: Yes (Hospitalization)
  Sender: FDA-Public Use
  Company Number: US-ASTRAZENECA-2009SE30076

PATIENT
  Age: 56 Year
  Sex: Male

DRUGS (9)
  1. CRESTOR [Suspect]
     Route: 048
     Dates: start: 20080101, end: 20091028
  2. NIACIN [Suspect]
     Dates: start: 20091007, end: 20091028
  3. APIXABAN [Suspect]
     Indication: ACUTE CORONARY SYNDROME
     Route: 048
     Dates: start: 20091008
  4. PLACEBO [Suspect]
     Indication: ACUTE CORONARY SYNDROME
     Route: 048
     Dates: start: 20091008
  5. LISINOPRIL [Concomitant]
  6. METFORMIN HCL [Concomitant]
  7. CLOPIDOGREL BISULFATE [Concomitant]
     Dates: start: 20091005
  8. ATORVASTATIN CALCIUM [Concomitant]
     Dates: start: 20091005
  9. ASPIRIN [Concomitant]
     Dates: start: 20091005

REACTIONS (1)
  - ARTHROPATHY [None]
